FAERS Safety Report 16977462 (Version 1)
Quarter: 2019Q4

REPORT INFORMATION
  Report Type: Other
  Country: GB (occurrence: GB)
  Receive Date: 20191031
  Receipt Date: 20191031
  Transmission Date: 20200122
  Serious: Yes (Hospitalization)
  Sender: FDA-Public Use
  Company Number: GB-APTAPHARMA INC.-2076254

PATIENT
  Age: 50 Year
  Sex: Female

DRUGS (3)
  1. IBUPROFEN ORAL [Suspect]
     Active Substance: IBUPROFEN
     Indication: PYREXIA
     Route: 065
  2. WARFARIN SODIUM. [Suspect]
     Active Substance: WARFARIN SODIUM
     Route: 048
  3. ASPIRIN. [Suspect]
     Active Substance: ASPIRIN
     Route: 048

REACTIONS (3)
  - Subdural haematoma [Recovered/Resolved]
  - International normalised ratio increased [Recovered/Resolved]
  - Brain midline shift [Recovered/Resolved]
